FAERS Safety Report 5713214-5 (Version None)
Quarter: 2008Q2

REPORT INFORMATION
  Report Type: 
  Country: None (occurrence: None)
  Receive Date: 20080422
  Receipt Date: 19960313
  Transmission Date: 20081010
  Serious: Yes (Death, Hospitalization)
  Sender: FDA-Public Use
  Company Number: US-ROCHE-59939

PATIENT
  Age: 49 Year
  Sex: Female

DRUGS (4)
  1. TICLOPIDINE HCL [Suspect]
     Route: 048
     Dates: start: 19941209, end: 19950107
  2. ASPIRIN [Concomitant]
     Route: 065
  3. TOPROL-XL [Concomitant]
     Indication: TRANSIENT ISCHAEMIC ATTACK
     Route: 065
  4. PROCARDIA [Concomitant]
     Indication: TRANSIENT ISCHAEMIC ATTACK
     Route: 065

REACTIONS (2)
  - CEREBRAL INFARCTION [None]
  - THROMBOTIC THROMBOCYTOPENIC PURPURA [None]
